FAERS Safety Report 13874589 (Version 1)
Quarter: 2017Q3

REPORT INFORMATION
  Report Type: Spontaneous
  Country: US (occurrence: US)
  Receive Date: 20170816
  Receipt Date: 20170816
  Transmission Date: 20171127
  Serious: No
  Sender: FDA-Public Use
  Company Number: US-ROCHE-1173939

PATIENT
  Age: 51 Year
  Sex: Female
  Weight: 94.43 kg

DRUGS (8)
  1. STEROID (NAME UNKNOWN) [Concomitant]
     Indication: URTICARIA
  2. SUMATRIPTAN. [Concomitant]
     Active Substance: SUMATRIPTAN
  3. STEROID (NAME UNKNOWN) [Concomitant]
     Indication: PRURITUS
  4. ATORVASTAN [Concomitant]
  5. MAGNESIUM [Concomitant]
     Active Substance: MAGNESIUM
  6. LUCENTIS [Suspect]
     Active Substance: RANIBIZUMAB
     Indication: RETINAL VEIN OCCLUSION
     Dosage: 0.5 MG/0.05ML IN RIGHT EYE
     Route: 050
     Dates: start: 20121121, end: 20121121
  7. OMEPRAZOL [Concomitant]
     Active Substance: OMEPRAZOLE
  8. AVIANE [Concomitant]
     Active Substance: ETHINYL ESTRADIOL\LEVONORGESTREL

REACTIONS (2)
  - Urticaria [Recovered/Resolved]
  - Pruritus [Recovered/Resolved]

NARRATIVE: CASE EVENT DATE: 20121123
